FAERS Safety Report 4998269-8 (Version None)
Quarter: 2006Q2

REPORT INFORMATION
  Report Type: 
  Country: None (occurrence: None)
  Receive Date: 20060510
  Receipt Date: 20041215
  Transmission Date: 20061013
  Serious: Yes (Hospitalization)
  Sender: FDA-Public Use
  Company Number: US-MERCK-0412USA02045

PATIENT
  Age: 59 Year
  Sex: Female
  Weight: 84 kg

DRUGS (11)
  1. VIOXX [Suspect]
     Indication: ARTHRITIS
     Route: 048
     Dates: start: 19991201, end: 20041031
  2. TYLENOL [Concomitant]
     Indication: PAIN
     Route: 065
  3. TOPROL-XL [Concomitant]
     Route: 065
  4. ZOLOFT [Concomitant]
     Route: 065
  5. XANAX [Concomitant]
     Route: 065
  6. DEMEROL [Concomitant]
     Route: 065
  7. PEPCID [Concomitant]
     Route: 065
  8. LOPERAMID [Concomitant]
     Route: 065
  9. DILTIAZEM HYDROCHLORIDE [Concomitant]
     Route: 065
  10. PLAVIX [Concomitant]
     Route: 065
  11. VERSED [Concomitant]
     Route: 065

REACTIONS (15)
  - ABDOMINAL PAIN UPPER [None]
  - ARTHROPATHY [None]
  - CEREBROVASCULAR ACCIDENT [None]
  - DERMAL CYST [None]
  - DIZZINESS [None]
  - DYSPNOEA [None]
  - EYELID DISORDER [None]
  - FIBROMYALGIA [None]
  - FUNGAL INFECTION [None]
  - HEADACHE [None]
  - INCISION SITE HAEMORRHAGE [None]
  - NAUSEA [None]
  - NERVE ROOT INJURY [None]
  - NERVE ROOT INJURY CERVICAL [None]
  - PALPITATIONS [None]
